FAERS Safety Report 6295850-3 (Version None)
Quarter: 2009Q3

REPORT INFORMATION
  Report Type: 
  Country: None (occurrence: None)
  Receive Date: 20090804
  Receipt Date: 20090724
  Transmission Date: 20100115
  Serious: Yes (Disabling)
  Sender: FDA-Public Use
  Company Number: JP-ROCHE-644207

PATIENT
  Sex: Male
  Weight: 51 kg

DRUGS (8)
  1. XELODA [Suspect]
     Indication: COLON CANCER
     Dosage: XELODA 300. NOTE: 2 WEEKS ADMINISTRATION FOLLOWED BY 1 WEEK REST.
     Route: 048
     Dates: start: 20081024, end: 20081112
  2. ALLEGRA [Concomitant]
     Route: 048
     Dates: start: 20081001, end: 20090121
  3. HIRUDOID [Concomitant]
     Dosage: FORM: EXTERNAL PREPARATION.
     Route: 061
     Dates: start: 20081001
  4. ANTEBATE [Concomitant]
     Dosage: FORM: EXTERNAL PREPARATION.
     Route: 061
     Dates: start: 20081001
  5. MIYA BM [Concomitant]
     Dosage: FORM: ORAL FORMULATION.
     Route: 048
     Dates: start: 20080922
  6. LOPEMIN [Concomitant]
     Dosage: NOTE: TAKEN AS NEEDED
     Route: 048
  7. MYSLEE [Concomitant]
     Dosage: NOTE: TAKEN AS NEEDED
     Route: 048
  8. ROHYPNOL [Concomitant]
     Dosage: NOTE: TAKEN AS NEEDED
     Route: 065

REACTIONS (1)
  - RETINAL VEIN OCCLUSION [None]
